FAERS Safety Report 5719353-7 (Version None)
Quarter: 2008Q2

REPORT INFORMATION
  Report Type: 
  Country: None (occurrence: None)
  Receive Date: 20080428
  Receipt Date: 20080418
  Transmission Date: 20081010
  Serious: Yes (Other)
  Sender: FDA-Public Use
  Company Number: US-ABBOTT-08P-163-0443424-00

PATIENT
  Sex: Male
  Weight: 66.284 kg

DRUGS (10)
  1. HUMIRA 40 MG/ 0.8 ML PRE-FILLED SYRINGE [Suspect]
     Indication: CROHN'S DISEASE
     Route: 058
     Dates: start: 20050117, end: 20050117
  2. HUMIRA 40 MG/ 0.8 ML PRE-FILLED SYRINGE [Suspect]
     Route: 058
  3. MESALAMINE [Concomitant]
     Indication: CROHN'S DISEASE
     Route: 048
  4. CYANOCOBALAMIN-TANNIN COMPLEX [Concomitant]
     Indication: CROHN'S DISEASE
     Route: 058
  5. FOLIC ACID [Concomitant]
     Indication: CROHN'S DISEASE
     Route: 048
  6. VALACYCLOVIR [Concomitant]
     Indication: ORAL HERPES
     Route: 048
  7. BUDESONIDE [Concomitant]
     Indication: HYPERSENSITIVITY
     Route: 048
  8. ASAPHEX [Concomitant]
     Indication: GASTROOESOPHAGEAL REFLUX DISEASE
     Route: 048
  9. CULTURELLE [Concomitant]
     Indication: CROHN'S DISEASE
     Route: 048
  10. XIFAXIN [Concomitant]
     Indication: CROHN'S DISEASE
     Route: 048

REACTIONS (5)
  - DIZZINESS [None]
  - INFECTIOUS MONONUCLEOSIS [None]
  - RETINAL ARTERY OCCLUSION [None]
  - RETINAL ARTERY THROMBOSIS [None]
  - VISION BLURRED [None]
